FAERS Safety Report 7145453-3 (Version None)
Quarter: 2010Q4

REPORT INFORMATION
  Report Type: 
  Country: None (occurrence: None)
  Receive Date: 20101208
  Receipt Date: 20101206
  Transmission Date: 20110411
  Serious: No
  Sender: FDA-Public Use
  Company Number: US-PFIZER INC-2010006595

PATIENT
  Sex: Female
  Weight: 61.224 kg

DRUGS (6)
  1. CHANTIX [Suspect]
     Indication: SMOKING CESSATION THERAPY
     Dosage: 0.5 MG, 1X/DAY
     Route: 048
     Dates: start: 20090101
  2. CHANTIX [Suspect]
     Dosage: 0.5 MG, 1X/DAY
     Dates: start: 20100109
  3. CHANTIX [Suspect]
     Dosage: 0.5 MG, 1X/DAY
     Dates: start: 20101101
  4. HYDROCODONE [Concomitant]
     Indication: PAIN
     Dosage: UNK
  5. PREMARIN [Concomitant]
     Indication: HORMONE LEVEL ABNORMAL
     Dosage: 1.25 MG, 1X/DAY
     Route: 048
     Dates: start: 19960101
  6. ACETAMINOPHEN AND HYDROCODONE BITARTRATE [Concomitant]
     Indication: PAIN MANAGEMENT
     Dosage: 10/325 MG, AS NEEDED OR TAKING 1 TO 4 TABLETS IN A DAY
     Route: 048

REACTIONS (13)
  - ABDOMINAL DISTENSION [None]
  - ABDOMINAL PAIN LOWER [None]
  - CHEST DISCOMFORT [None]
  - CONSTIPATION [None]
  - CRYING [None]
  - FATIGUE [None]
  - HEADACHE [None]
  - MALAISE [None]
  - NAUSEA [None]
  - NIGHTMARE [None]
  - SCREAMING [None]
  - SLEEP DISORDER [None]
  - WITHDRAWAL SYNDROME [None]
